FAERS Safety Report 4674103-0 (Version None)
Quarter: 2005Q2

REPORT INFORMATION
  Report Type: 
  Country: None (occurrence: None)
  Receive Date: 20050524
  Receipt Date: 20050524
  Transmission Date: 20051028
  Serious: No
  Sender: FDA-Public Use
  Company Number: None

PATIENT
  Age: 61 Year
  Sex: Male

DRUGS (4)
  1. LITHIUM [Suspect]
     Indication: BIPOLAR DISORDER
  2. HALOPERIDOL [Suspect]
  3. LISINOPRIL [Suspect]
  4. RISPERIDONE [Suspect]

REACTIONS (19)
  - AGITATION [None]
  - AUTONOMIC NERVOUS SYSTEM IMBALANCE [None]
  - BRADYCARDIA [None]
  - CONFUSIONAL STATE [None]
  - DECREASED APPETITE [None]
  - DIARRHOEA [None]
  - DYSKINESIA [None]
  - DYSTONIA [None]
  - FAECES DISCOLOURED [None]
  - FATIGUE [None]
  - HEART RATE INCREASED [None]
  - HYPERNATRAEMIA [None]
  - MEMORY IMPAIRMENT [None]
  - MENTAL STATUS CHANGES [None]
  - NEPHROGENIC DIABETES INSIPIDUS [None]
  - TARDIVE DYSKINESIA [None]
  - THERAPEUTIC AGENT TOXICITY [None]
  - TREMOR [None]
  - VERBIGERATION [None]
